FAERS Safety Report 5897409-6 (Version None)
Quarter: 2008Q3

REPORT INFORMATION
  Report Type: 
  Country: None (occurrence: None)
  Receive Date: 20080925
  Receipt Date: 20080917
  Transmission Date: 20090109
  Serious: Yes (Hospitalization)
  Sender: FDA-Public Use
  Company Number: JP-JNJFOC-20080806351

PATIENT
  Sex: Male

DRUGS (8)
  1. POLLAKISU [Suspect]
     Route: 048
  2. POLLAKISU [Suspect]
     Indication: POLLAKIURIA
     Route: 048
  3. ARTANE [Concomitant]
     Route: 048
  4. PERMAX [Concomitant]
     Route: 048
  5. MAGLAX [Concomitant]
     Route: 048
  6. ALENDRONATE SODIUM [Concomitant]
     Route: 048
  7. LOXONIN [Concomitant]
     Route: 048
  8. CARBIDOPA HYDRATE [Concomitant]
     Route: 048

REACTIONS (2)
  - FALL [None]
  - PARKINSON'S DISEASE [None]
